FAERS Safety Report 12381211 (Version 1)
Quarter: 2016Q2

REPORT INFORMATION
  Report Type: Spontaneous
  Country: US (occurrence: US)
  Receive Date: 20160518
  Receipt Date: 20160518
  Transmission Date: 20160815
  Serious: No
  Sender: FDA-Public Use
  Company Number: US-BAYER-2016-095432

PATIENT
  Age: 12 Year
  Sex: Female
  Weight: 40.82 kg

DRUGS (2)
  1. CLARITIN REDITABS [Suspect]
     Active Substance: LORATADINE
     Indication: NASAL CONGESTION
     Dosage: 2 DF, UNK GAVE 1 TAB  AT 07:30,THEN 15 MINUTES AGO, GAVE ANOTHER 1 TAB.
     Dates: start: 20160513, end: 20160513
  2. CLARITIN REDITABS [Suspect]
     Active Substance: LORATADINE
     Indication: NASAL CONGESTION
     Dosage: 1 DF, QD (AS NEEDED)

REACTIONS (1)
  - Product use issue [Recovered/Resolved]

NARRATIVE: CASE EVENT DATE: 20160513
